FAERS Safety Report 7359115-0 (Version None)
Quarter: 2011Q1

REPORT INFORMATION
  Report Type: 
  Country: None (occurrence: None)
  Receive Date: 20110317
  Receipt Date: 20110309
  Transmission Date: 20110831
  Serious: Yes (Hospitalization)
  Sender: FDA-Public Use
  Company Number: GB-MILLENNIUM PHARMACEUTICALS, INC.-2010-06311

PATIENT

DRUGS (12)
  1. DOXORUBICIN HCL [Suspect]
     Indication: MANTLE CELL LYMPHOMA
     Dosage: 110 MG, UNK
     Route: 042
     Dates: start: 20100903
  2. CYCLOPHOSPHAMIDE [Suspect]
     Indication: MANTLE CELL LYMPHOMA
     Dosage: 1700 MG, UNK
     Route: 042
     Dates: start: 20100903
  3. ONDANSETRON [Concomitant]
     Indication: PROPHYLAXIS OF NAUSEA AND VOMITING
     Dosage: 8 MG, UNK
     Route: 042
     Dates: start: 20100903
  4. CHLORAMPHENICOL [Concomitant]
     Indication: EYE INFLAMMATION
     Dosage: 1 DF, UNK
     Dates: start: 20101126, end: 20101202
  5. VELCADE [Suspect]
     Indication: MANTLE CELL LYMPHOMA
     Dosage: 3.5 MG, UNK
     Dates: start: 20100903
  6. VELCADE [Suspect]
     Dosage: 2.9 UNK, UNK
     Dates: start: 20101126
  7. PREDNISONE [Suspect]
     Indication: MANTLE CELL LYMPHOMA
     Dosage: 100 MG, UNK
     Dates: start: 20100903
  8. DOMPERIDONE [Concomitant]
     Indication: VOMITING
     Dosage: 20 MG, UNK
     Dates: start: 20100903
  9. ACYCLOVIR [Concomitant]
     Indication: PROPHYLAXIS
     Dosage: 400 MG, UNK
     Route: 048
     Dates: start: 20100903
  10. VINCRISTINE [Suspect]
     Indication: MANTLE CELL LYMPHOMA
     Dosage: 2 MG, UNK
     Dates: start: 20100903
  11. ONDANSETRON [Concomitant]
     Dosage: 4 UNK, UNK
     Route: 048
     Dates: start: 20100909
  12. LANSOPRAZOLE [Concomitant]
     Indication: PROPHYLAXIS
     Dosage: 30 MG, UNK
     Route: 048
     Dates: start: 20100903

REACTIONS (1)
  - TONSILLITIS [None]
